FAERS Safety Report 18524985 (Version 5)
Quarter: 2021Q1

REPORT INFORMATION
  Report Type: Report from Study
  Country: US (occurrence: US)
  Receive Date: 20201119
  Receipt Date: 20210125
  Transmission Date: 20210419
  Serious: Yes (Other)
  Sender: FDA-Public Use
  Company Number: US-PFIZER INC-2020014247

PATIENT
  Age: 50 Year
  Sex: Female

DRUGS (6)
  1. IBRANCE [Suspect]
     Active Substance: PALBOCICLIB
     Dosage: 75 MG, CYCLIC (75MG DAILY FOR 21 DAYS OF 28 DAY CYCLE )
     Route: 048
     Dates: start: 20201020
  2. IBRANCE [Suspect]
     Active Substance: PALBOCICLIB
     Dosage: UNK
     Route: 048
     Dates: start: 20191219, end: 202004
  3. IBRANCE [Suspect]
     Active Substance: PALBOCICLIB
     Indication: BREAST CANCER FEMALE
     Dosage: 125 MG, CYCLIC (CYCLE: 21 DAYS ON, 7 DAYS OFF)
     Route: 048
     Dates: start: 20191209, end: 202001
  4. FASLODEX [Concomitant]
     Active Substance: FULVESTRANT
     Dosage: UNK
     Route: 030
  5. IBRANCE [Suspect]
     Active Substance: PALBOCICLIB
     Dosage: 75 MG, CYCLIC(75MG DAILY FOR 21 DAYS OF 28 DAY /DAILY FOR 21 DAYS ON AND 7 DAYS OFF)
     Route: 048
     Dates: start: 20201122
  6. IBRANCE [Suspect]
     Active Substance: PALBOCICLIB
     Dosage: 100 MG, CYCLIC (22 DAYS OF 28 DAY CYCLE)
     Route: 048
     Dates: start: 20201020, end: 20201117

REACTIONS (8)
  - Leukopenia [Not Recovered/Not Resolved]
  - Liver disorder [Unknown]
  - Nail bed disorder [Unknown]
  - Myelosuppression [Unknown]
  - Stomatitis [Not Recovered/Not Resolved]
  - Blood phosphorus decreased [Unknown]
  - Fatigue [Unknown]
  - Abdominal pain upper [Unknown]

NARRATIVE: CASE EVENT DATE: 202010
